FAERS Safety Report 4681155-0 (Version None)
Quarter: 2005Q2

REPORT INFORMATION
  Report Type: 
  Country: None (occurrence: None)
  Receive Date: 20050602
  Receipt Date: 20050523
  Transmission Date: 20051028
  Serious: Yes (Disabling)
  Sender: FDA-Public Use
  Company Number: GXKR2005US01109

PATIENT
  Sex: Female

DRUGS (3)
  1. LORAZEPAM [Suspect]
     Indication: SLEEP DISORDER
     Dosage: SEE IMAGE
     Route: 048
  2. . [Concomitant]
  3. ZOLPIDEM TARTRATE [Concomitant]

REACTIONS (7)
  - COGNITIVE DETERIORATION [None]
  - DEPRESSION [None]
  - DRUG ABUSER [None]
  - LOSS OF EMPLOYMENT [None]
  - MENTAL IMPAIRMENT [None]
  - PITUITARY TUMOUR BENIGN [None]
  - SEDATION [None]
